FAERS Safety Report 9326816 (Version 2)
Quarter: 2013Q2

REPORT INFORMATION
  Report Type: Spontaneous
  Country: FR (occurrence: FR)
  Receive Date: 20130604
  Receipt Date: 20130617
  Transmission Date: 20140414
  Serious: Yes (Hospitalization)
  Sender: FDA-Public Use
  Company Number: PHHY2013FR055728

PATIENT
  Age: 82 Year
  Sex: Male

DRUGS (14)
  1. AMOXICILLINE-ACIDE CLAVULANIQUE [Suspect]
     Indication: LUNG INFECTION
     Dosage: 500 MG, BID
     Route: 048
     Dates: start: 20120913, end: 20120926
  2. CALCIPARINE [Concomitant]
     Dates: start: 20120911, end: 20121002
  3. ORAMORPH [Concomitant]
     Dates: start: 20120917
  4. MODOPAR [Concomitant]
  5. AZILECT [Concomitant]
  6. STILNOX [Concomitant]
  7. OGASTORO [Concomitant]
  8. XATRAL [Concomitant]
  9. PARACETAMOL [Concomitant]
  10. UVEDOSE [Concomitant]
  11. PLAVIX [Concomitant]
  12. TARDYFERON [Concomitant]
  13. MONO TILDIEM [Concomitant]
     Dates: end: 20120929
  14. MOVICOL [Concomitant]
     Dates: end: 20120926

REACTIONS (1)
  - Pyrexia [Recovered/Resolved]
